FAERS Safety Report 6355490-4 (Version None)
Quarter: 2009Q3

REPORT INFORMATION
  Report Type: 
  Country: None (occurrence: None)
  Receive Date: 20090910
  Receipt Date: 20090902
  Transmission Date: 20100115
  Serious: Yes (Hospitalization)
  Sender: FDA-Public Use
  Company Number: CIP09002478

PATIENT
  Age: 35 Year
  Sex: Female

DRUGS (1)
  1. ASACOL [Suspect]
     Indication: COLITIS ULCERATIVE
     Dosage: 400 MG THREE TIMES DAILY,; 400 MG TWICE DAILY,

REACTIONS (2)
  - BRADYCARDIA [None]
  - HYPOTENSION [None]
